FAERS Safety Report 13962153 (Version 2)
Quarter: 2017Q4

REPORT INFORMATION
  Report Type: Spontaneous
  Country: FR (occurrence: FR)
  Receive Date: 20170912
  Receipt Date: 20171016
  Transmission Date: 20180320
  Serious: Yes (Other)
  Sender: FDA-Public Use
  Company Number: FR-MERCK KGAA-2025954

PATIENT
  Age: 44 Year
  Sex: Female

DRUGS (2)
  1. NOVOTHYROX [Suspect]
     Active Substance: LEVOTHYROXINE SODIUM
     Indication: HYPOTHYROIDISM
     Route: 048
  2. NOVOTHYROX [Suspect]
     Active Substance: LEVOTHYROXINE SODIUM
     Route: 048
     Dates: start: 20170531

REACTIONS (13)
  - Irritability [Recovering/Resolving]
  - Headache [Recovering/Resolving]
  - Strabismus [Recovering/Resolving]
  - Nausea [Recovering/Resolving]
  - Exophthalmos [Recovering/Resolving]
  - Decreased appetite [Recovering/Resolving]
  - Fatigue [Recovering/Resolving]
  - Photophobia [Recovering/Resolving]
  - Nervousness [Recovering/Resolving]
  - Insomnia [Recovering/Resolving]
  - Diffuse alopecia [Recovering/Resolving]
  - Hyperhidrosis [Recovering/Resolving]
  - Micturition urgency [Recovering/Resolving]

NARRATIVE: CASE EVENT DATE: 20170701
